FAERS Safety Report 8524914-6 (Version None)
Quarter: 2012Q3

REPORT INFORMATION
  Report Type: 
  Country: None (occurrence: None)
  Receive Date: 20120720
  Receipt Date: 20120712
  Transmission Date: 20120928
  Serious: Yes (Other)
  Sender: FDA-Public Use
  Company Number: US-JNJFOC-20120600731

PATIENT
  Sex: Female
  Weight: 105.24 kg

DRUGS (9)
  1. HYDROCHLOROTHIAZIDE [Concomitant]
     Indication: BLOOD PRESSURE
     Route: 048
  2. SIMVASTATIN [Concomitant]
     Dosage: IN THE EVENING
  3. OXYCODONE HCL [Concomitant]
     Indication: PAIN
     Dosage: AS NEEDED
     Route: 048
     Dates: start: 20120501
  4. TRIGELS-F FORTE [Concomitant]
  5. XARELTO [Suspect]
     Indication: HIP ARTHROPLASTY
     Route: 048
     Dates: start: 20120508, end: 20120528
  6. TOPAMAX [Concomitant]
     Indication: MIGRAINE
     Dosage: IN THE EVENING
     Route: 048
  7. XARELTO [Suspect]
     Indication: THROMBOSIS PROPHYLAXIS
     Route: 048
     Dates: start: 20120508, end: 20120528
  8. COLACE [Concomitant]
     Indication: ABNORMAL FAECES
     Dosage: IN THE EVENING
     Route: 048
  9. MULTIPLE VITAMIN [Concomitant]
     Dosage: EVERY AM

REACTIONS (3)
  - ARTHRALGIA [None]
  - SEROMA [None]
  - DRUG DOSE OMISSION [None]
